APPROVED DRUG PRODUCT: MONOPRIL-HCT
Active Ingredient: FOSINOPRIL SODIUM; HYDROCHLOROTHIAZIDE
Strength: 10MG;12.5MG **Federal Register determination that product was not discontinued or withdrawn for safety or effectiveness reasons**
Dosage Form/Route: TABLET;ORAL
Application: N020286 | Product #002
Applicant: BRISTOL MYERS SQUIBB
Approved: Nov 30, 1994 | RLD: Yes | RS: No | Type: DISCN